FAERS Safety Report 4332481-6 (Version None)
Quarter: 2004Q2

REPORT INFORMATION
  Report Type: 
  Country: None (occurrence: None)
  Receive Date: 20040401
  Receipt Date: 20040317
  Transmission Date: 20050107
  Serious: Yes (Other)
  Sender: FDA-Public Use
  Company Number: BE-JNJFOC-20031005793

PATIENT
  Age: 47 Year
  Sex: Female

DRUGS (1)
  1. PROPULSID [Suspect]
     Indication: IMPAIRED GASTRIC EMPTYING
     Dosage: 10 MG, 3 IN 1 DAY,
     Route: 048
     Dates: start: 20030924, end: 20031022

REACTIONS (6)
  - CONDITION AGGRAVATED [None]
  - DRUG EFFECT DECREASED [None]
  - DRY MOUTH [None]
  - DYSPNOEA [None]
  - IMPAIRED GASTRIC EMPTYING [None]
  - PALPITATIONS [None]
